FAERS Safety Report 11149184 (Version 3)
Quarter: 2015Q3

REPORT INFORMATION
  Report Type: Spontaneous
  Country: US (occurrence: US)
  Receive Date: 20150529
  Receipt Date: 20150720
  Transmission Date: 20151125
  Serious: No
  Sender: FDA-Public Use
  Company Number: US-GILEAD-2015-0155551

PATIENT
  Age: 59 Year
  Sex: Female

DRUGS (5)
  1. VALACYCLOVIR [Concomitant]
     Active Substance: VALACYCLOVIR HYDROCHLORIDE
     Dosage: 500 MG, BID X 7DAYS
     Route: 048
  2. HARVONI [Suspect]
     Active Substance: LEDIPASVIR\SOFOSBUVIR
     Indication: PRODUCT USED FOR UNKNOWN INDICATION
     Dosage: UNK
     Route: 065
     Dates: start: 201504
  3. VALACYCLOVIR [Concomitant]
     Active Substance: VALACYCLOVIR HYDROCHLORIDE
     Dosage: 500 MG, QD FOR 3 MONTHS
     Route: 048
  4. PROPRANOLOL [Suspect]
     Active Substance: PROPRANOLOL\PROPRANOLOL HYDROCHLORIDE
     Dosage: 20 MG, BID
     Route: 065
  5. VALIUM [Concomitant]
     Active Substance: DIAZEPAM
     Indication: ANXIETY
     Dosage: 5 MG, PRN QD
     Route: 048

REACTIONS (15)
  - Cheilitis [Recovered/Resolved]
  - Cough [Unknown]
  - Hypoaesthesia [Unknown]
  - Eyelid oedema [Recovered/Resolved]
  - Acne [Unknown]
  - Memory impairment [Unknown]
  - Labyrinthitis [Unknown]
  - Depression [Recovered/Resolved]
  - Eyelid infection [Recovered/Resolved]
  - Dizziness [Recovered/Resolved]
  - Breast pain [Unknown]
  - Anal pruritus [Unknown]
  - Vulvovaginal pruritus [Unknown]
  - Arthralgia [Unknown]
  - Gingival swelling [Unknown]

NARRATIVE: CASE EVENT DATE: 20150402
